FAERS Safety Report 18183424 (Version 8)
Quarter: 2024Q4

REPORT INFORMATION
  Report Type: Report from Study
  Country: US (occurrence: US)
  Receive Date: 20200822
  Receipt Date: 20241002
  Transmission Date: 20250115
  Serious: Yes (Life-Threatening, Hospitalization)
  Sender: NOVARTIS
  Company Number: NVSC2020US230895

PATIENT
  Age: 1 Month
  Sex: Female
  Weight: 7.26 kg

DRUGS (5)
  1. ZOLGENSMA [Suspect]
     Active Substance: ONASEMNOGENE ABEPARVOVEC-XIOI
     Indication: Spinal muscular atrophy
     Dosage: 16.6 ML X 1 DOSE OVER 60 MINUTES (1.1 X E14VG/KG), ONCE/SINGLE
     Route: 042
     Dates: start: 20191210, end: 20191210
  2. PREDNISONE [Concomitant]
     Active Substance: PREDNISONE
     Indication: Product used for unknown indication
     Dosage: 1 MG/KG, QD
     Route: 065
     Dates: start: 20191209, end: 20200620
  3. PREDNISOLONE [Concomitant]
     Active Substance: PREDNISOLONE
     Indication: Product used for unknown indication
     Dosage: 1 MG/KG
     Route: 065
     Dates: start: 20191209, end: 20200128
  4. PREDNISOLONE [Concomitant]
     Active Substance: PREDNISOLONE
     Dosage: 0.5 ML (3 MG/ML)
     Route: 065
     Dates: start: 20200127, end: 20200203
  5. PREDNISOLONE [Concomitant]
     Active Substance: PREDNISOLONE
     Dosage: 0.25 ML (3 MG/ML)
     Route: 065
     Dates: start: 20200203, end: 20200212

REACTIONS (11)
  - Hepatic enzyme increased [Not Recovered/Not Resolved]
  - Hepatitis C virus test positive [Not Recovered/Not Resolved]
  - Cough [Recovered/Resolved]
  - Rhinorrhoea [Recovered/Resolved]
  - Ear infection [Recovered/Resolved]
  - Hypophagia [Recovered/Resolved]
  - Pyrexia [Recovered/Resolved]
  - Teething [Recovered/Resolved]
  - Bronchiolitis [Recovered/Resolved]
  - Otitis media acute [Recovered/Resolved]
  - Atelectasis [Recovered/Resolved]

NARRATIVE: CASE EVENT DATE: 20200303
